FAERS Safety Report 6054486-X (Version None)
Quarter: 2009Q1

REPORT INFORMATION
  Report Type: 
  Country: None (occurrence: None)
  Receive Date: 20090127
  Receipt Date: 20090105
  Transmission Date: 20090719
  Serious: Yes (Hospitalization, Other)
  Sender: FDA-Public Use
  Company Number: PHHY2008DE27358

PATIENT
  Sex: Male

DRUGS (8)
  1. CLOZAPINE [Suspect]
     Indication: SCHIZOAFFECTIVE DISORDER
     Dosage: UPTO 325 MG/DAY
     Route: 048
     Dates: start: 20080602, end: 20080722
  2. SOLIAN [Suspect]
     Dosage: UPTO 1200 MG/DAY
     Route: 048
     Dates: start: 20080402, end: 20080722
  3. CIPROFLOXACIN [Suspect]
     Dosage: 500 MG/DAY
     Route: 048
     Dates: start: 20080701, end: 20080716
  4. METRONIDAZOLE HCL [Concomitant]
     Dosage: 400 MG, TID
     Dates: start: 20080701, end: 20080718
  5. DECORTIN-H [Concomitant]
     Indication: TUBULOINTERSTITIAL NEPHRITIS
     Dosage: 1200 MG/DAY
     Route: 048
     Dates: start: 20080701, end: 20080718
  6. DECORTIN-H [Concomitant]
     Dosage: 100 MG/DAY
  7. ERGENYL [Concomitant]
     Dosage: 1700 MG/DAY
     Route: 048
     Dates: start: 20080129
  8. NEXIUM [Concomitant]
     Dosage: 40 MG/DAY
     Route: 048
     Dates: start: 20080701

REACTIONS (15)
  - ABDOMINAL PAIN UPPER [None]
  - ANTIBIOTIC THERAPY [None]
  - ASTHENIA [None]
  - BIOPSY KIDNEY ABNORMAL [None]
  - BLOOD CREATININE INCREASED [None]
  - BODY TEMPERATURE INCREASED [None]
  - C-REACTIVE PROTEIN INCREASED [None]
  - CHOLECYSTITIS [None]
  - CHOLELITHIASIS [None]
  - DRUG LEVEL INCREASED [None]
  - NEPHROLITHIASIS [None]
  - PROTEINURIA [None]
  - PYREXIA [None]
  - RENAL ABSCESS [None]
  - TUBULOINTERSTITIAL NEPHRITIS [None]
